FAERS Safety Report 15234668 (Version 1)
Quarter: 2018Q3

REPORT INFORMATION
  Report Type: Spontaneous
  Country: ES (occurrence: ES)
  Receive Date: 20180803
  Receipt Date: 20180803
  Transmission Date: 20181010
  Serious: Yes (Hospitalization)
  Sender: FDA-Public Use
  Company Number: ES-SUN PHARMACEUTICAL INDUSTRIES LTD-2018R1-180107

PATIENT
  Age: 15 Month
  Sex: Male
  Weight: 11 kg

DRUGS (1)
  1. PARACETAMOL [Suspect]
     Active Substance: ACETAMINOPHEN
     Indication: PRODUCT USED FOR UNKNOWN INDICATION
     Dosage: 110 MG/KG, EVERY 24 HRS (110MG/KG/DIA X 7 DIAS)
     Route: 048
     Dates: start: 20171110, end: 20171116

REACTIONS (2)
  - Overdose [Unknown]
  - Hypertransaminasaemia [Unknown]

NARRATIVE: CASE EVENT DATE: 20171120
